FAERS Safety Report 8449312-5 (Version None)
Quarter: 2012Q2

REPORT INFORMATION
  Report Type: 
  Country: None (occurrence: None)
  Receive Date: 20120619
  Receipt Date: 20120616
  Transmission Date: 20120825
  Serious: No
  Sender: FDA-Public Use
  Company Number: US-TEVA-343752USA

PATIENT
  Sex: Female
  Weight: 59.02 kg

DRUGS (2)
  1. DEPAKOTE [Concomitant]
     Indication: EPILEPSY
  2. PLAN B ONE-STEP [Suspect]
     Indication: POST COITAL CONTRACEPTION
     Dosage: 1.5 MILLIGRAM;
     Route: 048
     Dates: start: 20120611, end: 20120611

REACTIONS (1)
  - MENSTRUATION IRREGULAR [None]
